FAERS Safety Report 6653945-6 (Version None)
Quarter: 2010Q1

REPORT INFORMATION
  Report Type: 
  Country: None (occurrence: None)
  Receive Date: 20100326
  Receipt Date: 20100201
  Transmission Date: 20100710
  Serious: No
  Sender: FDA-Public Use
  Company Number: US-BAUSCH-2010BL000769

PATIENT
  Age: 68 Year
  Sex: Female

DRUGS (2)
  1. BESIVANCE [Suspect]
     Indication: KERATITIS BACTERIAL
     Dosage: 1 DROP EVERY 30 MINUTES
     Route: 047
     Dates: start: 20091028, end: 20091029
  2. BESIVANCE [Suspect]
     Indication: OFF LABEL USE
     Dosage: 1 DROP EVERY 30 MINUTES
     Route: 047
     Dates: start: 20091028, end: 20091029

REACTIONS (3)
  - EYE PAIN [None]
  - INAPPROPRIATE SCHEDULE OF DRUG ADMINISTRATION [None]
  - VISUAL ACUITY REDUCED [None]
